FAERS Safety Report 6885260-X (Version None)
Quarter: 2010Q3

REPORT INFORMATION
  Report Type: 
  Country: None (occurrence: None)
  Receive Date: 20100729
  Receipt Date: 20100721
  Transmission Date: 20110219
  Serious: Yes (Hospitalization, Other)
  Sender: FDA-Public Use
  Company Number: GB-AMGEN-KDL423536

PATIENT
  Sex: Female
  Weight: 82 kg

DRUGS (4)
  1. VECTIBIX [Suspect]
     Indication: COLORECTAL CANCER
     Route: 042
     Dates: start: 20091207, end: 20100702
  2. DOMPERIDONE [Concomitant]
     Route: 048
  3. EMLA [Concomitant]
     Route: 061
     Dates: start: 20090131
  4. DEXAMETHASONE [Concomitant]
     Route: 048

REACTIONS (7)
  - DRY SKIN [None]
  - PHOTOSENSITIVITY REACTION [None]
  - PURULENCE [None]
  - SECRETION DISCHARGE [None]
  - SKIN FISSURES [None]
  - SKIN INFECTION [None]
  - SUNBURN [None]
